FAERS Safety Report 11766562 (Version 5)
Quarter: 2016Q1

REPORT INFORMATION
  Report Type: Report from Study
  Country: GB (occurrence: GB)
  Receive Date: 20151123
  Receipt Date: 20160129
  Transmission Date: 20160525
  Serious: Yes (Hospitalization)
  Sender: FDA-Public Use
  Company Number: GB-ROCHE-1663430

PATIENT
  Age: 54 Year
  Sex: Female
  Weight: 51.6 kg

DRUGS (14)
  1. PERTUZUMAB [Suspect]
     Active Substance: PERTUZUMAB
     Indication: HER-2 POSITIVE BREAST CANCER
     Dosage: LOADING DOSE
     Route: 042
     Dates: start: 20150601
  2. TRASTUZUMAB [Suspect]
     Active Substance: TRASTUZUMAB
     Indication: HER-2 POSITIVE BREAST CANCER
     Dosage: LOADING DOSE
     Route: 042
     Dates: start: 20150601
  3. TRASTUZUMAB [Suspect]
     Active Substance: TRASTUZUMAB
     Dosage: MAINTENANCE DOSE (6 MG/KG)?DATE OF LAST DOSE PRIOR TO SAE: 26/OCT/2015
     Route: 042
     Dates: start: 20150622
  4. FLUOROURACIL. [Suspect]
     Active Substance: FLUOROURACIL
     Route: 042
     Dates: start: 20150511
  5. EPIRUBICIN [Suspect]
     Active Substance: EPIRUBICIN
     Indication: HER-2 POSITIVE BREAST CANCER
     Route: 042
     Dates: start: 20150309
  6. EPIRUBICIN [Suspect]
     Active Substance: EPIRUBICIN
     Route: 042
     Dates: start: 20150511
  7. PERTUZUMAB [Suspect]
     Active Substance: PERTUZUMAB
     Dosage: MAINTENANCE DOSE?DATE OF MOST RECENT DOSE PRIOR TO SAE: 26/OCT/2015
     Route: 042
     Dates: start: 20150622
  8. DOCETAXEL. [Suspect]
     Active Substance: DOCETAXEL
     Indication: HER-2 POSITIVE BREAST CANCER
     Dosage: DATE OF MOST RECENT DOSE PRIOR TO SAE: 01/JUN/2015
     Route: 042
     Dates: start: 20150601
  9. EVENING PRIMROSE OIL [Concomitant]
     Active Substance: EVENING PRIMROSE OIL
     Route: 048
     Dates: start: 2000
  10. CYCLOPHOSPHAMIDE. [Suspect]
     Active Substance: CYCLOPHOSPHAMIDE
     Indication: HER-2 POSITIVE BREAST CANCER
     Route: 042
     Dates: start: 20150309
  11. CYCLOPHOSPHAMIDE. [Suspect]
     Active Substance: CYCLOPHOSPHAMIDE
     Route: 042
     Dates: start: 20150511
  12. GRAPE SEED [Concomitant]
     Route: 048
     Dates: start: 201212
  13. FLUOROURACIL. [Suspect]
     Active Substance: FLUOROURACIL
     Indication: HER-2 POSITIVE BREAST CANCER
     Route: 042
     Dates: start: 20150309
  14. CO-AMOXICLAV [Concomitant]
     Active Substance: AMOXICILLIN\CLAVULANIC ACID
     Indication: MASTITIS
     Route: 048
     Dates: start: 20151003

REACTIONS (1)
  - Device related infection [Recovered/Resolved]

NARRATIVE: CASE EVENT DATE: 20151116
